FAERS Safety Report 5002374-X (Version None)
Quarter: 2006Q2

REPORT INFORMATION
  Report Type: 
  Country: None (occurrence: None)
  Receive Date: 20060515
  Receipt Date: 20060509
  Transmission Date: 20061013
  Serious: Yes (Hospitalization)
  Sender: FDA-Public Use
  Company Number: AU-BOEHRINGER INGELHEIM PHARMACEUTICALS, INC.-2006-BP-05256AU

PATIENT
  Age: 78 Year
  Sex: Male

DRUGS (3)
  1. MICARDIS [Suspect]
     Route: 048
  2. STALEVO 100 [Suspect]
     Indication: PARKINSON'S DISEASE
  3. CABERGOLINE [Suspect]

REACTIONS (3)
  - CEREBROVASCULAR ACCIDENT [None]
  - FACIAL PALSY [None]
  - HEMIPARESIS [None]
